FAERS Safety Report 19441283 (Version 2)
Quarter: 2021Q3

REPORT INFORMATION
  Report Type: Spontaneous
  Country: GB (occurrence: GB)
  Receive Date: 20210621
  Receipt Date: 20210704
  Transmission Date: 20211014
  Serious: Yes (Other)
  Sender: FDA-Public Use
  Company Number: GB-TEVA-2021-GB-1923592

PATIENT
  Age: 76 Year
  Sex: Female
  Weight: 51 kg

DRUGS (3)
  1. ASTRAZENECA COVID?19 VACCINE [Suspect]
     Active Substance: AZD-1222
     Dosage: DOSE 2
     Route: 065
     Dates: start: 20210424
  2. PREDNISOLONE. [Suspect]
     Active Substance: PREDNISOLONE
     Route: 065
  3. ASTRAZENECA COVID?19 VACCINE [Suspect]
     Active Substance: AZD-1222
     Dosage: DOSE 1
     Route: 065
     Dates: start: 20210130

REACTIONS (4)
  - Malaise [Unknown]
  - Bell^s palsy [Not Recovered/Not Resolved]
  - Tinnitus [Unknown]
  - Fatigue [Unknown]

NARRATIVE: CASE EVENT DATE: 20210603
